FAERS Safety Report 5608391-0 (Version None)
Quarter: 2008Q1

REPORT INFORMATION
  Report Type: 
  Country: None (occurrence: None)
  Receive Date: 20080125
  Receipt Date: 20080111
  Transmission Date: 20080703
  Serious: Yes (Death, Life-Threatening)
  Sender: FDA-Public Use
  Company Number: 2008P1000003

PATIENT
  Age: 0 Year
  Sex: Male
  Weight: 4.1 kg

DRUGS (6)
  1. BUSULFAN (BUSULFAN) [Suspect]
     Indication: STEM CELL TRANSPLANT
     Dosage: 1.0 MG/KG;QID;IV
     Route: 042
     Dates: start: 20071019, end: 20071023
  2. POLYMYXIN B SULFATE [Concomitant]
  3. VANCOMYCIN HYDROCHLORIDE [Concomitant]
  4. TAUROURSODESOXYCHOLIC ACID [Concomitant]
  5. FLUCONAZOLE [Concomitant]
  6. FLUDARABINE PHOSPHATE [Concomitant]

REACTIONS (23)
  - ALANINE AMINOTRANSFERASE INCREASED [None]
  - ASPARTATE AMINOTRANSFERASE INCREASED [None]
  - BLOOD PRESSURE DECREASED [None]
  - CARDIAC ARREST [None]
  - DELAYED ENGRAFTMENT [None]
  - DIARRHOEA [None]
  - GENERAL PHYSICAL HEALTH DETERIORATION [None]
  - GRAFT VERSUS HOST DISEASE [None]
  - HYPOGLYCAEMIA [None]
  - HYPOVOLAEMIA [None]
  - ILL-DEFINED DISORDER [None]
  - IMMUNOSUPPRESSANT DRUG LEVEL INCREASED [None]
  - JAUNDICE [None]
  - NEUTROPHIL COUNT DECREASED [None]
  - PULMONARY OEDEMA [None]
  - RASH [None]
  - RENAL FAILURE ACUTE [None]
  - RESPIRATORY DISORDER [None]
  - RESPIRATORY FAILURE [None]
  - SEPTIC SHOCK [None]
  - STAPHYLOCOCCAL SEPSIS [None]
  - VENOOCCLUSIVE DISEASE [None]
  - WHITE BLOOD CELL COUNT DECREASED [None]
